FAERS Safety Report 6268884-2 (Version None)
Quarter: 2009Q3

REPORT INFORMATION
  Report Type: 
  Country: None (occurrence: None)
  Receive Date: 20090715
  Receipt Date: 20090703
  Transmission Date: 20100115
  Serious: Yes (Other)
  Sender: FDA-Public Use
  Company Number: PHHY2009AU27381

PATIENT
  Sex: Female

DRUGS (1)
  1. EXFORGE [Suspect]
     Indication: HYPERTENSION
     Dosage: 10/160 MG
     Route: 048
     Dates: start: 20090601, end: 20090704

REACTIONS (6)
  - ERYTHEMA [None]
  - JOINT SWELLING [None]
  - MALAISE [None]
  - PRESYNCOPE [None]
  - SWELLING FACE [None]
  - SYNCOPE [None]
